FAERS Safety Report 8384761-5 (Version None)
Quarter: 2012Q2

REPORT INFORMATION
  Report Type: 
  Country: None (occurrence: None)
  Receive Date: 20120524
  Receipt Date: 20120511
  Transmission Date: 20120825
  Serious: Yes (Other)
  Sender: FDA-Public Use
  Company Number: IE-JNJFOC-20120511664

PATIENT
  Age: 37 Year
  Sex: Male

DRUGS (4)
  1. HALOPERIDOL [Suspect]
     Dosage: DOSE REDUCED AND WITHDRAWN
     Route: 065
  2. CARBAMAZEPINE [Concomitant]
     Indication: EPILEPSY
     Route: 065
  3. HALOPERIDOL [Suspect]
     Indication: BIPOLAR DISORDER
     Dosage: DOSE INCREASED
     Route: 065
  4. HALOPERIDOL [Suspect]
     Route: 065

REACTIONS (1)
  - OBSESSIVE-COMPULSIVE DISORDER [None]
